FAERS Safety Report 24638461 (Version 1)
Quarter: 2024Q4

REPORT INFORMATION
  Report Type: Spontaneous
  Country: US (occurrence: None)
  Receive Date: 20241119
  Receipt Date: 20241119
  Transmission Date: 20250115
  Serious: Yes (Life-Threatening, Hospitalization)
  Sender: Public
  Company Number: None

PATIENT
  Age: 62 Year
  Sex: Female

DRUGS (2)
  1. FLUCONAZOLE [Suspect]
     Active Substance: FLUCONAZOLE
     Indication: Oral candidiasis
     Dosage: FREQUENCY : DAILY;?
     Route: 048
     Dates: start: 20240811, end: 20240812
  2. AMOXICILLIN [Suspect]
     Active Substance: AMOXICILLIN

REACTIONS (4)
  - Throat tightness [None]
  - Anaphylactic reaction [None]
  - Pruritus [None]
  - Rash [None]

NARRATIVE: CASE EVENT DATE: 20240812
